FAERS Safety Report 9335223 (Version 2)
Quarter: 2013Q3

REPORT INFORMATION
  Report Type: Spontaneous
  Country: JP (occurrence: JP)
  Receive Date: 20130606
  Receipt Date: 20130814
  Transmission Date: 20140515
  Serious: Yes (Other)
  Sender: FDA-Public Use
  Company Number: JP-PFIZER INC-2013166301

PATIENT
  Age: 43 Year
  Sex: Female

DRUGS (1)
  1. PREMARIN [Suspect]
     Indication: MENSTRUAL CYCLE MANAGEMENT
     Dosage: 0.625 MG, 3X/DAY
     Route: 048
     Dates: start: 20130522, end: 20130522

REACTIONS (6)
  - Asthenia [Not Recovered/Not Resolved]
  - Muscle rigidity [Not Recovered/Not Resolved]
  - Gait disturbance [Not Recovered/Not Resolved]
  - Incorrect dose administered [Unknown]
  - Malaise [Unknown]
  - Off label use [Unknown]
